FAERS Safety Report 6697393 (Version 5)
Quarter: 2020Q3

REPORT INFORMATION
  Report Type: Report from Study
  Country: US (occurrence: US)
  Receive Date: 20080711
  Receipt Date: 20160531
  Transmission Date: 20201104
  Serious: Yes (Hospitalization)
  Sender: FDA-Public Use
  Company Number: US-PFIZER INC-2008046162

PATIENT
  Age: 58 Year
  Sex: Male
  Weight: 108 kg

DRUGS (5)
  1. SUNITINIB MALATE. [Suspect]
     Active Substance: SUNITINIB MALATE
     Indication: RENAL CELL CARCINOMA
     Dosage: 37.5 MG, 1X/DAY
     Route: 048
     Dates: start: 20080522, end: 20080601
  2. ALLOPURINOL. [Concomitant]
     Active Substance: ALLOPURINOL
     Dosage: 200 MG, 1X/DAY
     Route: 048
     Dates: start: 20060405
  3. COSOPT [Concomitant]
     Active Substance: DORZOLAMIDE HYDROCHLORIDE\TIMOLOL MALEATE
     Dosage: UNK, 2X/DAY
     Route: 047
     Dates: start: 20020913
  4. TREMELIMUMAB. [Suspect]
     Active Substance: TREMELIMUMAB
     Indication: RENAL CELL CARCINOMA
     Dosage: 1631 MG, (TDD 1631 MG) (15 MG/KG), ONCE, EVERY 12 WEEKS
     Route: 042
     Dates: start: 20080522, end: 20080522
  5. LOTREL [Concomitant]
     Active Substance: AMLODIPINE BESYLATE\BENAZEPRIL HYDROCHLORIDE
     Dosage: 5/10 MG, 1X/DAY
     Route: 048
     Dates: start: 20060308

REACTIONS (5)
  - Oedema [Recovered/Resolved]
  - Diarrhoea [Recovered/Resolved]
  - Pyrexia [Recovered/Resolved]
  - Renal failure [Recovered/Resolved with Sequelae]
  - Diverticulitis [Recovered/Resolved]

NARRATIVE: CASE EVENT DATE: 20080602
